FAERS Safety Report 13709078 (Version 1)
Quarter: 2017Q3

REPORT INFORMATION
  Report Type: Spontaneous
  Country: PT (occurrence: PT)
  Receive Date: 20170702
  Receipt Date: 20170702
  Transmission Date: 20171127
  Serious: Yes (Other)
  Sender: FDA-Public Use
  Company Number: PT-SHIRE-PT201713738

PATIENT

DRUGS (4)
  1. BAXJECT II [Suspect]
     Active Substance: DEVICE
     Indication: PRODUCT USED FOR UNKNOWN INDICATION
     Dosage: 500 IU, 2X A WEEK
     Route: 065
  2. ADVATE [Suspect]
     Active Substance: ANTIHEMOPHILIC FACTOR, HUMAN RECOMBINANT
     Indication: PRODUCT USED FOR UNKNOWN INDICATION
     Dosage: 500 IU, 2X A WEEK
     Route: 065
  3. BAXJECT II [Suspect]
     Active Substance: DEVICE
     Indication: PROPHYLAXIS
     Dosage: 1250 IU, 1X/DAY:QD, TREATMENT
     Route: 065
  4. ADVATE [Suspect]
     Active Substance: ANTIHEMOPHILIC FACTOR, HUMAN RECOMBINANT
     Indication: PROPHYLAXIS
     Dosage: 1250 IU, 1X/DAY:QD, TREATMENT
     Route: 065

REACTIONS (3)
  - Lip injury [Unknown]
  - Factor VIII inhibition [Unknown]
  - Haemorrhage [Unknown]

NARRATIVE: CASE EVENT DATE: 201706
